FAERS Safety Report 6584855-0 (Version None)
Quarter: 2010Q1

REPORT INFORMATION
  Report Type: 
  Country: None (occurrence: None)
  Receive Date: 20100217
  Receipt Date: 20100206
  Transmission Date: 20100710
  Serious: Yes (Other)
  Sender: FDA-Public Use
  Company Number: US-JNJFOC-20100204344

PATIENT
  Sex: Male
  Weight: 33.57 kg

DRUGS (2)
  1. REMICADE [Suspect]
     Indication: CROHN'S DISEASE
     Route: 042
  2. REMICADE [Suspect]
     Dosage: RECEIVED 3 INFUSIONS
     Route: 042

REACTIONS (2)
  - MUSCLE SPASMS [None]
  - SENSATION OF HEAVINESS [None]
